FAERS Safety Report 14274702 (Version 1)
Quarter: 2017Q4

REPORT INFORMATION
  Report Type: Spontaneous
  Country: US (occurrence: US)
  Receive Date: 20171212
  Receipt Date: 20171212
  Transmission Date: 20180321
  Serious: Yes (Disabling)
  Sender: FDA-Public Use
  Company Number: None

PATIENT
  Age: 45 Year
  Sex: Female
  Weight: 49.5 kg

DRUGS (1)
  1. DYSPORT [Suspect]
     Active Substance: ABOBOTULINUMTOXINA
     Indication: SKIN COSMETIC PROCEDURE
     Dates: start: 20171103

REACTIONS (6)
  - Tinnitus [None]
  - Dry eye [None]
  - Dry throat [None]
  - Vision blurred [None]
  - Bladder dysfunction [None]
  - Dysphagia [None]

NARRATIVE: CASE EVENT DATE: 20171117
